FAERS Safety Report 17485397 (Version 2)
Quarter: 2020Q2

REPORT INFORMATION
  Report Type: Report from Study
  Country: DE (occurrence: DE)
  Receive Date: 20200302
  Receipt Date: 20200421
  Transmission Date: 20200713
  Serious: Yes (Death, Hospitalization)
  Sender: FDA-Public Use
  Company Number: DE-BEH-2020113791

PATIENT
  Age: 80 Year
  Sex: Female
  Weight: 56 kg

DRUGS (6)
  1. PRIVIGEN [Suspect]
     Active Substance: HUMAN IMMUNOGLOBULIN G
     Indication: SECONDARY IMMUNODEFICIENCY
     Dosage: 20 GRAM, TOT
     Route: 042
     Dates: start: 20181122, end: 20181122
  2. PRIVIGEN [Suspect]
     Active Substance: HUMAN IMMUNOGLOBULIN G
     Indication: INFECTION
  3. DIGITOXIN [Concomitant]
     Active Substance: DIGITOXIN
  4. BISOPROLOL [Concomitant]
     Active Substance: BISOPROLOL
  5. PRIVIGEN [Suspect]
     Active Substance: HUMAN IMMUNOGLOBULIN G
     Indication: CHRONIC LYMPHOCYTIC LEUKAEMIA
     Dosage: 20 GRAM, TOT
     Route: 042
     Dates: start: 20180913, end: 20180913
  6. IMBRUVICA [Concomitant]
     Active Substance: IBRUTINIB

REACTIONS (3)
  - Lung abscess [Fatal]
  - Pneumonia [Fatal]
  - Dehydration [Unknown]

NARRATIVE: CASE EVENT DATE: 201812
